FAERS Safety Report 10409987 (Version 1)
Quarter: 2014Q3

REPORT INFORMATION
  Report Type: Report from Study
  Country: TR (occurrence: TR)
  Receive Date: 20140826
  Receipt Date: 20140826
  Transmission Date: 20150326
  Serious: Yes (Death, Hospitalization)
  Sender: FDA-Public Use
  Company Number: TR-INCYTE CORPORATION-2014IN002359

PATIENT
  Age: 58 Year
  Sex: Female

DRUGS (1)
  1. INC424 [Suspect]
     Active Substance: RUXOLITINIB
     Dosage: 30 MG, UNK
     Route: 048
     Dates: start: 20130828, end: 20140604

REACTIONS (5)
  - Hepatic enzyme increased [Unknown]
  - Meningitis [Unknown]
  - Fungal infection [Unknown]
  - Death [Fatal]
  - Blood bilirubin increased [Unknown]

NARRATIVE: CASE EVENT DATE: 20140604
